FAERS Safety Report 6425372-8 (Version None)
Quarter: 2009Q4

REPORT INFORMATION
  Report Type: 
  Country: None (occurrence: None)
  Receive Date: 20091103
  Receipt Date: 20091023
  Transmission Date: 20100525
  Serious: Yes (Other)
  Sender: FDA-Public Use
  Company Number: B0599716A

PATIENT
  Sex: Female

DRUGS (2)
  1. ARIXTRA [Suspect]
     Indication: THROMBOSIS IN DEVICE
     Dosage: 7.5MG PER DAY
     Route: 058
     Dates: start: 20090916
  2. CHEMOTHERAPY [Concomitant]
     Route: 065
     Dates: start: 20090715

REACTIONS (3)
  - INCORRECT DRUG ADMINISTRATION DURATION [None]
  - OFF LABEL USE [None]
  - TRANSAMINASES INCREASED [None]
